FAERS Safety Report 8898640 (Version 1)
Quarter: 2012Q4

REPORT INFORMATION
  Report Type: Report from Study
  Country: CA (occurrence: CA)
  Receive Date: 20121109
  Receipt Date: 20121109
  Transmission Date: 20130627
  Serious: Yes (Hospitalization)
  Sender: FDA-Public Use
  Company Number: CA-ABBOTT-12P-028-1003661-00

PATIENT
  Sex: Female

DRUGS (2)
  1. HUMIRA [Suspect]
     Indication: COLITIS ULCERATIVE
     Route: 058
     Dates: start: 20120721, end: 20121027
  2. HUMIRA [Suspect]
     Route: 058
     Dates: start: 20121103

REACTIONS (2)
  - Hospitalisation [Unknown]
  - Therapy regimen changed [Unknown]
